FAERS Safety Report 13196702 (Version 2)
Quarter: 2017Q2

REPORT INFORMATION
  Report Type: Spontaneous
  Country: US (occurrence: US)
  Receive Date: 20170208
  Receipt Date: 20170413
  Transmission Date: 20170830
  Serious: Yes (Hospitalization)
  Sender: FDA-Public Use
  Company Number: US-ALLERGAN-1704213US

PATIENT
  Age: 69 Year
  Sex: Female
  Weight: 90.25 kg

DRUGS (3)
  1. LOMOTIL [Concomitant]
     Active Substance: ATROPINE SULFATE\DIPHENOXYLATE HYDROCHLORIDE
     Route: 065
  2. VIBERZI [Suspect]
     Active Substance: ELUXADOLINE
     Indication: DIARRHOEA
     Dosage: 75 MG, BID
     Dates: start: 20170130, end: 20170131
  3. BENTYL [Concomitant]
     Active Substance: DICYCLOMINE HYDROCHLORIDE
     Route: 065

REACTIONS (4)
  - Abdominal pain [Recovered/Resolved]
  - Amylase increased [Recovered/Resolved]
  - Off label use [Unknown]
  - Lipase increased [Recovered/Resolved]

NARRATIVE: CASE EVENT DATE: 20170130
